FAERS Safety Report 4340994-6 (Version None)
Quarter: 2004Q2

REPORT INFORMATION
  Report Type: 
  Country: None (occurrence: None)
  Receive Date: 20040413
  Receipt Date: 20040331
  Transmission Date: 20050107
  Serious: No
  Sender: FDA-Public Use
  Company Number: 04P-020-0247376-00

PATIENT
  Age: 51 Year
  Sex: Female
  Weight: 59.5 kg

DRUGS (6)
  1. HUMIRA [Suspect]
     Indication: RHEUMATOID ARTHRITIS
     Dosage: MG,  1 IN 2 WK, SUBCUTANEOUS
     Route: 058
     Dates: start: 20030731, end: 20040102
  2. HUMIRA [Suspect]
     Indication: RHEUMATOID ARTHRITIS
     Dosage: MG,  1 IN 2 WK, SUBCUTANEOUS
     Route: 058
     Dates: start: 20040129
  3. PREDNISONE [Concomitant]
  4. METHOTREXATE [Concomitant]
  5. FOLIC ACID [Concomitant]
  6. ROFECOXIB [Concomitant]

REACTIONS (6)
  - ABDOMINAL MASS [None]
  - ABDOMINAL PAIN LOWER [None]
  - CYTOMEGALOVIRUS ANTIBODY POSITIVE [None]
  - LYMPHADENOPATHY [None]
  - PELVIC INFECTION [None]
  - RUBELLA [None]
